FAERS Safety Report 22085122 (Version 1)
Quarter: 2023Q1

REPORT INFORMATION
  Report Type: Spontaneous
  Country: US (occurrence: None)
  Receive Date: 20230309
  Receipt Date: 20230309
  Transmission Date: 20230417
  Serious: No
  Sender: FDA-Public Use
  Company Number: None

PATIENT
  Age: 41 Year
  Sex: Female
  Weight: 78.47 kg

DRUGS (1)
  1. ORENCIA [Suspect]
     Active Substance: ABATACEPT
     Indication: Rheumatoid arthritis
     Dosage: INJECT 125MG SUBCUTANEOUSLY ONCE A WEEK AS DIRECTED
     Route: 058
     Dates: start: 202101

REACTIONS (1)
  - Hospitalisation [None]
